FAERS Safety Report 6194861-6 (Version None)
Quarter: 2009Q2

REPORT INFORMATION
  Report Type: 
  Country: None (occurrence: None)
  Receive Date: 20090519
  Receipt Date: 20081001
  Transmission Date: 20091009
  Serious: No
  Sender: FDA-Public Use
  Company Number: US-TYCO HEALTHCARE/MALLINCKRODT-T200801608

PATIENT

DRUGS (2)
  1. METHADONE [Suspect]
  2. METHADOSE [Concomitant]

REACTIONS (2)
  - UNEVALUABLE EVENT [None]
  - WITHDRAWAL SYNDROME [None]
